FAERS Safety Report 9008163 (Version 1)
Quarter: 2013Q1

REPORT INFORMATION
  Report Type: Spontaneous
  Country: US (occurrence: US)
  Receive Date: 20130111
  Receipt Date: 20130111
  Transmission Date: 20140127
  Serious: Yes (Other)
  Sender: FDA-Public Use
  Company Number: US-009507513-0911USA00645

PATIENT
  Age: 12 Month
  Sex: Male

DRUGS (4)
  1. SINGULAIR [Suspect]
     Indication: ECZEMA
     Dosage: 4 MG, QD
     Route: 048
     Dates: start: 20080527, end: 20080908
  2. SINGULAIR [Suspect]
     Indication: URTICARIA
  3. SINGULAIR [Suspect]
     Indication: ECZEMA
     Dosage: 2 MG, QD
     Route: 048
     Dates: start: 20080908, end: 20090101
  4. SINGULAIR [Suspect]
     Indication: URTICARIA

REACTIONS (2)
  - Nightmare [Recovered/Resolved]
  - Screaming [Recovered/Resolved]
